FAERS Safety Report 5811696-1 (Version None)
Quarter: 2008Q3

REPORT INFORMATION
  Report Type: 
  Country: None (occurrence: None)
  Receive Date: 20080716
  Receipt Date: 20080708
  Transmission Date: 20090109
  Serious: Yes (Disabling, Other)
  Sender: FDA-Public Use
  Company Number: A0725089A

PATIENT
  Age: 38 Year
  Sex: Female
  Weight: 93.2 kg

DRUGS (8)
  1. ZIAGEN [Suspect]
     Indication: HIV INFECTION
     Dosage: 600MG PER DAY
     Route: 048
     Dates: start: 20080407, end: 20080420
  2. REYATAZ [Suspect]
     Indication: HIV INFECTION
     Dosage: 300MG UNKNOWN
     Route: 048
     Dates: start: 20080407, end: 20080420
  3. RITONAVIR [Suspect]
     Indication: HIV INFECTION
     Dosage: 100MG UNKNOWN
     Route: 048
     Dates: start: 20080407, end: 20080420
  4. EPIVIR [Concomitant]
     Indication: HIV INFECTION
     Dosage: 300MG UNKNOWN
     Route: 048
     Dates: start: 20080407, end: 20080420
  5. PRAVASTATIN [Concomitant]
     Dosage: 20MG UNKNOWN
     Route: 048
     Dates: start: 20080402, end: 20080420
  6. HYDROCHLOROTHIAZIDE [Concomitant]
     Indication: HYPERTENSION
     Dosage: 25MG UNKNOWN
     Route: 048
     Dates: start: 20080402, end: 20080420
  7. ATIVAN [Concomitant]
     Indication: ANXIETY
     Dosage: .5MG UNKNOWN
     Route: 048
     Dates: start: 20080407
  8. ADVAIR DISKUS 100/50 [Concomitant]
     Indication: DRUG USE FOR UNKNOWN INDICATION
     Route: 055
     Dates: start: 20060101

REACTIONS (7)
  - CONVULSION [None]
  - DERMATITIS CONTACT [None]
  - HYPERSENSITIVITY [None]
  - LIP SWELLING [None]
  - RASH [None]
  - RASH PRURITIC [None]
  - TREMOR [None]
